FAERS Safety Report 24560851 (Version 1)
Quarter: 2024Q4

REPORT INFORMATION
  Report Type: Spontaneous
  Country: FR (occurrence: FR)
  Receive Date: 20241029
  Receipt Date: 20241029
  Transmission Date: 20250115
  Serious: Yes (Hospitalization)
  Sender: PFIZER
  Company Number: None

PATIENT
  Age: 85 Year
  Sex: Male
  Weight: 73 kg

DRUGS (1)
  1. VYNDAQEL [Suspect]
     Active Substance: TAFAMIDIS MEGLUMINE
     Indication: Amyloidosis
     Dosage: 20 MG, 1X/DAY
     Route: 048
     Dates: start: 202404, end: 20240827

REACTIONS (2)
  - Coma [Not Recovered/Not Resolved]
  - Hypercapnia [Not Recovered/Not Resolved]

NARRATIVE: CASE EVENT DATE: 20240827
